FAERS Safety Report 15398757 (Version 1)
Quarter: 2018Q3

REPORT INFORMATION
  Report Type: Spontaneous
  Country: US (occurrence: US)
  Receive Date: 20180918
  Receipt Date: 20180918
  Transmission Date: 20181010
  Serious: No
  Sender: FDA-Public Use
  Company Number: US-BRAINTREE LABORATORIES-170514

PATIENT
  Age: 39 Year
  Sex: Female
  Weight: 54.43 kg

DRUGS (1)
  1. SUPREP BOWEL PREP [Suspect]
     Active Substance: MAGNESIUM SULFATE\POTASSIUM SULFATE\SODIUM SULFATE
     Indication: COLONOSCOPY
     Dosage: 2 X 6 OZ. BOTTLE
     Route: 048
     Dates: start: 20170823, end: 20170824

REACTIONS (9)
  - Dry skin [None]
  - Dry mouth [None]
  - Tremor [None]
  - Headache [None]
  - Weight increased [None]
  - Heart rate increased [None]
  - Erythema [None]
  - Dry eye [None]
  - Pruritus [None]

NARRATIVE: CASE EVENT DATE: 20170823
